FAERS Safety Report 23728405 (Version 1)
Quarter: 2024Q2

REPORT INFORMATION
  Report Type: Spontaneous
  Country: US (occurrence: None)
  Receive Date: 20240409
  Receipt Date: 20240409
  Transmission Date: 20240716
  Serious: No
  Sender: FDA-Public Use
  Company Number: None

PATIENT

DRUGS (1)
  1. EPINEPHRINE BITARTRATE\LIDOCAINE HYDROCHLORIDE\TETRACAINE HYDROCHLORID [Suspect]
     Active Substance: EPINEPHRINE BITARTRATE\LIDOCAINE HYDROCHLORIDE\TETRACAINE HYDROCHLORIDE
     Dosage: STRENGH:?LIDOCAINE 4%, EPINEPHRINE BITARTRATE 0.18% + TETRACAINE HCL 0.5%
     Route: 061

REACTIONS (4)
  - Incorrect route of product administration [None]
  - Product dosage form confusion [None]
  - Discomfort [None]
  - Toxicity to various agents [None]
